FAERS Safety Report 8473306-7 (Version None)
Quarter: 2012Q2

REPORT INFORMATION
  Report Type: 
  Country: None (occurrence: None)
  Receive Date: 20120628
  Receipt Date: 20120622
  Transmission Date: 20120825
  Serious: Yes (Hospitalization)
  Sender: FDA-Public Use
  Company Number: MY-AMGEN-MYSSP2012039327

PATIENT
  Age: 41 Year

DRUGS (3)
  1. ADRIAMYCIN                         /00330902/ [Concomitant]
     Indication: CHEMOTHERAPY
     Dosage: UNK
     Dates: start: 20120531
  2. NEUPOGEN [Suspect]
     Indication: PRODUCT USED FOR UNKNOWN INDICATION
     Dosage: UNK
     Route: 042
     Dates: start: 20120602, end: 20120610
  3. CYCLOPHOSPHAMIDE [Concomitant]
     Indication: CHEMOTHERAPY
     Dosage: UNK
     Dates: start: 20120531

REACTIONS (3)
  - SEPSIS [None]
  - PYREXIA [None]
  - NEUTROPENIA [None]
